FAERS Safety Report 9220016 (Version 4)
Quarter: 2013Q3

REPORT INFORMATION
  Report Type: Spontaneous
  Country: US (occurrence: US)
  Receive Date: 20130409
  Receipt Date: 20130904
  Transmission Date: 20140515
  Serious: Yes (Life-Threatening, Hospitalization, Other)
  Sender: FDA-Public Use
  Company Number: US-INCYTE CORPORATION-2013IN000665

PATIENT
  Age: 51 Year
  Sex: Female
  Weight: 113 kg

DRUGS (11)
  1. JAKAFI [Suspect]
     Indication: MYELOFIBROSIS
     Dosage: 20 MG, BID
     Route: 048
     Dates: start: 20130215, end: 20130328
  2. JAKAFI [Suspect]
     Dosage: 10 MG, BID
     Dates: start: 2013
  3. ASPIRIN [Concomitant]
     Dosage: 81 MG, QD
  4. ALLOPURINOL [Concomitant]
     Dosage: 100 MG, QD
  5. CARVEDILOL [Concomitant]
     Dosage: 25 BID
  6. CLONIDINE [Concomitant]
     Dosage: 0.1 BID
  7. DOCUSATE [Concomitant]
     Dosage: 100 PRN
  8. ROBAXIN [Concomitant]
     Dosage: 500 EVERY 8 HOURS
  9. LORTAB [Concomitant]
     Dosage: AS NEEDED
  10. PREDNISONE [Concomitant]
     Dosage: 20 MG, QD
     Route: 048
  11. RENVELA [Concomitant]
     Dosage: 100 MG, TID

REACTIONS (9)
  - Pancytopenia [Recovering/Resolving]
  - Pyrexia [Recovered/Resolved]
  - Cardiac failure congestive [Unknown]
  - Withdrawal syndrome [Unknown]
  - Haemoglobin decreased [Recovering/Resolving]
  - Renal failure chronic [Unknown]
  - Cough [Unknown]
  - Dyspnoea [Unknown]
  - Blood count abnormal [Unknown]
